FAERS Safety Report 18343321 (Version 1)
Quarter: 2020Q4

REPORT INFORMATION
  Report Type: Spontaneous
  Country: US (occurrence: US)
  Receive Date: 20201003
  Receipt Date: 20201003
  Transmission Date: 20210113
  Serious: Yes (Other)
  Sender: FDA-Public Use
  Company Number: None

PATIENT
  Age: 70 Year
  Sex: Female
  Weight: 54 kg

DRUGS (16)
  1. OMEPRAZOLE. [Concomitant]
     Active Substance: OMEPRAZOLE
  2. AMOXICILLIN 500MG [Concomitant]
     Active Substance: AMOXICILLIN
  3. PLAVIX [Concomitant]
     Active Substance: CLOPIDOGREL BISULFATE
  4. CALCIUM [Concomitant]
     Active Substance: CALCIUM
  5. OMEGA [Concomitant]
  6. RANOLAZINE 500MG ER TABLETS [Suspect]
     Active Substance: RANOLAZINE
     Indication: PALPITATIONS
     Dosage: ?          QUANTITY:1 TABLET(S);?
     Route: 048
     Dates: start: 20200925, end: 20200930
  7. METOPROLOL ER SUCCINATE [Concomitant]
     Active Substance: METOPROLOL SUCCINATE
  8. ASPIRIN 81MG [Concomitant]
     Active Substance: ASPIRIN
  9. RANOLAZINE 500MG ER TABLETS [Suspect]
     Active Substance: RANOLAZINE
     Indication: CHEST PAIN
     Dosage: ?          QUANTITY:1 TABLET(S);?
     Route: 048
     Dates: start: 20200925, end: 20200930
  10. TYLENOL-ARTHRITIS [Concomitant]
  11. LEVOTHYROXINE. [Concomitant]
     Active Substance: LEVOTHYROXINE
  12. VITAMIN B [Concomitant]
     Active Substance: VITAMIN B
  13. VITAMIN D3 [Concomitant]
     Active Substance: CHOLECALCIFEROL
  14. ATORVASTATIN [Concomitant]
     Active Substance: ATORVASTATIN
  15. ISOSORBIDE MONONITRATE. [Concomitant]
     Active Substance: ISOSORBIDE MONONITRATE
  16. LOSARTAN. [Concomitant]
     Active Substance: LOSARTAN

REACTIONS (3)
  - Headache [None]
  - Dizziness [None]
  - Anxiety [None]

NARRATIVE: CASE EVENT DATE: 20200925
